FAERS Safety Report 14808888 (Version 19)
Quarter: 2022Q1

REPORT INFORMATION
  Report Type: Spontaneous
  Country: DE (occurrence: DE)
  Receive Date: 20180425
  Receipt Date: 20220214
  Transmission Date: 20220423
  Serious: Yes (Hospitalization)
  Sender: FDA-Public Use
  Company Number: DE-ADRED-00034-01

PATIENT
  Age: 62 Year
  Sex: Female
  Weight: 45 kg

DRUGS (199)
  1. TIOTROPIUM BROMIDE [Suspect]
     Active Substance: TIOTROPIUM BROMIDE
     Indication: Product used for unknown indication
     Dosage: 2 DF, QD
     Route: 055
  2. TIOTROPIUM BROMIDE [Suspect]
     Active Substance: TIOTROPIUM BROMIDE
     Dosage: 36 UG, QD
     Route: 055
  3. TIOTROPIUM BROMIDE [Suspect]
     Active Substance: TIOTROPIUM BROMIDE
     Dosage: 36 UG, BID
     Route: 055
  4. TIOTROPIUM BROMIDE [Suspect]
     Active Substance: TIOTROPIUM BROMIDE
     Dosage: 18 UG,BID
     Route: 055
  5. TIOTROPIUM BROMIDE [Suspect]
     Active Substance: TIOTROPIUM BROMIDE
     Dosage: 2 DF
     Route: 055
  6. TIOTROPIUM BROMIDE [Suspect]
     Active Substance: TIOTROPIUM BROMIDE
     Route: 055
  7. TIOTROPIUM BROMIDE [Suspect]
     Active Substance: TIOTROPIUM BROMIDE
     Route: 055
  8. TIOTROPIUM BROMIDE [Suspect]
     Active Substance: TIOTROPIUM BROMIDE
     Route: 055
  9. AMBROXOL HYDROCHLORIDE [Suspect]
     Active Substance: AMBROXOL HYDROCHLORIDE
     Indication: Product used for unknown indication
     Dosage: 30 GTT DROPS, PRN
     Route: 048
  10. AMBROXOL HYDROCHLORIDE [Suspect]
     Active Substance: AMBROXOL HYDROCHLORIDE
     Route: 048
  11. NOVALGIN (METAMIZOLE SODIUM) [Suspect]
     Active Substance: METAMIZOLE SODIUM
     Indication: Product used for unknown indication
     Dosage: (30 DROP(S)) IN 8 HOUR
     Route: 048
  12. NOVALGIN (METAMIZOLE SODIUM) [Suspect]
     Active Substance: METAMIZOLE SODIUM
     Dosage: (30 DROP(S)) IN 8 HOUR
     Route: 048
  13. PANTOPRAZOLE SODIUM [Suspect]
     Active Substance: PANTOPRAZOLE SODIUM
     Indication: Product used for unknown indication
     Dosage: (40 MILLIGRAM(S)) IN 1 DAY
     Route: 048
  14. PANTOPRAZOLE SODIUM [Suspect]
     Active Substance: PANTOPRAZOLE SODIUM
     Dosage: (40 MILLIGRAM(S)) IN 1 DAY
     Route: 048
  15. PANTOPRAZOLE SODIUM [Suspect]
     Active Substance: PANTOPRAZOLE SODIUM
     Dosage: (40 MILLIGRAM(S)) IN 1 DAY
     Route: 048
  16. PANTOPRAZOLE SODIUM [Suspect]
     Active Substance: PANTOPRAZOLE SODIUM
     Dosage: (40 MILLIGRAM(S)) IN 1 DAY
     Route: 048
  17. MAGNESIUM CITRATE\MAGNESIUM OXIDE\PYRIDOXINE HYDROCHLORIDE [Suspect]
     Active Substance: MAGNESIUM CITRATE\MAGNESIUM OXIDE\PYRIDOXINE HYDROCHLORIDE
     Indication: Product used for unknown indication
     Dosage: IN 12 HOUR
     Route: 048
  18. MAGNESIUM CITRATE\MAGNESIUM OXIDE\PYRIDOXINE HYDROCHLORIDE [Suspect]
     Active Substance: MAGNESIUM CITRATE\MAGNESIUM OXIDE\PYRIDOXINE HYDROCHLORIDE
     Dosage: (2 DOSAGE FORM) IN 1 DAY
     Route: 048
  19. MAGNESIUM CITRATE\MAGNESIUM OXIDE\PYRIDOXINE HYDROCHLORIDE [Suspect]
     Active Substance: MAGNESIUM CITRATE\MAGNESIUM OXIDE\PYRIDOXINE HYDROCHLORIDE
     Dosage: IN 12 HOUR
     Route: 048
  20. MAGNESIUM CITRATE\MAGNESIUM OXIDE\PYRIDOXINE HYDROCHLORIDE [Suspect]
     Active Substance: MAGNESIUM CITRATE\MAGNESIUM OXIDE\PYRIDOXINE HYDROCHLORIDE
     Dosage: 1 DOSAGE FORM) IN 1 DAY
     Route: 048
  21. MAGNESIUM CITRATE\MAGNESIUM OXIDE\PYRIDOXINE HYDROCHLORIDE [Suspect]
     Active Substance: MAGNESIUM CITRATE\MAGNESIUM OXIDE\PYRIDOXINE HYDROCHLORIDE
     Dosage: (2 DOSAGE FORM) IN 1 DAY
     Route: 048
  22. MAGNESIUM CITRATE\MAGNESIUM OXIDE\PYRIDOXINE HYDROCHLORIDE [Suspect]
     Active Substance: MAGNESIUM CITRATE\MAGNESIUM OXIDE\PYRIDOXINE HYDROCHLORIDE
     Dosage: (1 DOSAGE FORM) IN 1 DAY
     Route: 048
  23. ACETAMINOPHEN\CAFFEINE\PHENYLEPHRINE HYDROCHLORIDE [Suspect]
     Active Substance: ACETAMINOPHEN\CAFFEINE\PHENYLEPHRINE HYDROCHLORIDE
     Indication: Product used for unknown indication
     Dosage: ,1 IN 8 HOUR
     Route: 048
  24. RAPAMUNE [Suspect]
     Active Substance: SIROLIMUS
     Indication: Product used for unknown indication
     Dosage: 1 MG, QD
     Route: 048
  25. RAPAMUNE [Suspect]
     Active Substance: SIROLIMUS
     Dosage: UNK UNK,UNK
     Route: 048
  26. RAPAMUNE [Suspect]
     Active Substance: SIROLIMUS
     Route: 048
  27. RAPAMUNE [Suspect]
     Active Substance: SIROLIMUS
     Route: 048
  28. EZETIMIBE [Suspect]
     Active Substance: EZETIMIBE
     Indication: Product used for unknown indication
     Dosage: 10 MG, QD
     Route: 048
  29. EZETIMIBE [Suspect]
     Active Substance: EZETIMIBE
     Dosage: (10 MILLIGRAM(S)) IN 1 DAY
     Route: 048
  30. EZETIMIBE [Suspect]
     Active Substance: EZETIMIBE
     Dosage: (10 MILLIGRAM(S)) IN 1 DAY
     Route: 048
  31. EZETIMIBE [Suspect]
     Active Substance: EZETIMIBE
     Dosage: (10 MILLIGRAM(S)) IN 1 DAY
     Route: 048
  32. EZETIMIBE [Suspect]
     Active Substance: EZETIMIBE
     Dosage: (10 MILLIGRAM(S)) IN 1 DAY
     Route: 048
  33. EZETIMIBE [Suspect]
     Active Substance: EZETIMIBE
     Dosage: (10 MILLIGRAM(S)) IN 1 DAY
     Route: 048
  34. EZETIMIBE [Suspect]
     Active Substance: EZETIMIBE
     Route: 048
  35. ACETAMINOPHEN\CAFFEINE\PROPYPHENAZONE [Suspect]
     Active Substance: ACETAMINOPHEN\CAFFEINE\PROPYPHENAZONE
     Indication: Product used for unknown indication
     Dosage: 30 DROP(S)) IN 8 HOUR
     Route: 048
  36. CITRIC ACID MONOHYDRATE\POTASSIUM BICARBONATE\POTASSIUM CITRATE [Suspect]
     Active Substance: CITRIC ACID MONOHYDRATE\POTASSIUM BICARBONATE\POTASSIUM CITRATE
     Indication: Product used for unknown indication
     Dosage: (100 MILLIGRAM(S)) IN 1 DAY
     Route: 048
  37. CITRIC ACID MONOHYDRATE\POTASSIUM BICARBONATE\POTASSIUM CITRATE [Suspect]
     Active Substance: CITRIC ACID MONOHYDRATE\POTASSIUM BICARBONATE\POTASSIUM CITRATE
     Route: 048
  38. CITRIC ACID MONOHYDRATE\POTASSIUM BICARBONATE\POTASSIUM CITRATE [Suspect]
     Active Substance: CITRIC ACID MONOHYDRATE\POTASSIUM BICARBONATE\POTASSIUM CITRATE
     Dosage: 100.0 MILLIGRAM(S) (100 MILLIGRAM(S)),1 IN 1 DAY
     Route: 048
  39. CITRIC ACID MONOHYDRATE\POTASSIUM BICARBONATE\POTASSIUM CITRATE [Suspect]
     Active Substance: CITRIC ACID MONOHYDRATE\POTASSIUM BICARBONATE\POTASSIUM CITRATE
     Dosage: (100 MILLIGRAM(S)) IN 1 DAY
     Route: 048
  40. CITRIC ACID MONOHYDRATE\POTASSIUM BICARBONATE\POTASSIUM CITRATE [Suspect]
     Active Substance: CITRIC ACID MONOHYDRATE\POTASSIUM BICARBONATE\POTASSIUM CITRATE
     Dosage: 100 MG, QD
     Route: 048
  41. CITRIC ACID MONOHYDRATE\POTASSIUM BICARBONATE\POTASSIUM CITRATE [Suspect]
     Active Substance: CITRIC ACID MONOHYDRATE\POTASSIUM BICARBONATE\POTASSIUM CITRATE
     Dosage: (100 MILLIGRAM(S)) IN 1 DAY
     Route: 048
  42. CITRIC ACID MONOHYDRATE\POTASSIUM BICARBONATE\POTASSIUM CITRATE [Suspect]
     Active Substance: CITRIC ACID MONOHYDRATE\POTASSIUM BICARBONATE\POTASSIUM CITRATE
     Dosage: UNK
     Route: 048
  43. CITRIC ACID MONOHYDRATE\POTASSIUM BICARBONATE\POTASSIUM CITRATE [Suspect]
     Active Substance: CITRIC ACID MONOHYDRATE\POTASSIUM BICARBONATE\POTASSIUM CITRATE
     Dosage: (100 MILLIGRAM(S)) IN 1 DAY
     Route: 048
  44. CITRIC ACID MONOHYDRATE\POTASSIUM BICARBONATE\POTASSIUM CITRATE [Suspect]
     Active Substance: CITRIC ACID MONOHYDRATE\POTASSIUM BICARBONATE\POTASSIUM CITRATE
     Route: 048
  45. CITRIC ACID MONOHYDRATE\POTASSIUM BICARBONATE\POTASSIUM CITRATE [Suspect]
     Active Substance: CITRIC ACID MONOHYDRATE\POTASSIUM BICARBONATE\POTASSIUM CITRATE
     Route: 048
  46. CITRIC ACID MONOHYDRATE\POTASSIUM BICARBONATE\POTASSIUM CITRATE [Suspect]
     Active Substance: CITRIC ACID MONOHYDRATE\POTASSIUM BICARBONATE\POTASSIUM CITRATE
     Route: 048
  47. LACTULOSE [Suspect]
     Active Substance: LACTULOSE
     Indication: Product used for unknown indication
     Dosage: 1 DF, QD (1 MEASURING CUP)
     Route: 048
  48. LACTULOSE [Suspect]
     Active Substance: LACTULOSE
     Dosage: 1 DF
     Route: 048
  49. LACTULOSE [Suspect]
     Active Substance: LACTULOSE
     Dosage: 1 DF, QD (1 MEASURING CUP)
     Route: 048
  50. LACTULOSE [Suspect]
     Active Substance: LACTULOSE
     Dosage: 1 UNK, UNK
     Route: 048
  51. LACTULOSE [Suspect]
     Active Substance: LACTULOSE
     Dosage: 1 DF, QD
     Route: 048
  52. LACTULOSE [Suspect]
     Active Substance: LACTULOSE
     Route: 048
  53. LACTULOSE [Suspect]
     Active Substance: LACTULOSE
     Dosage: 1 DF, QD
     Route: 048
  54. LACTULOSE [Suspect]
     Active Substance: LACTULOSE
     Dosage: 1 DF, QD
     Route: 048
  55. LACTULOSE [Suspect]
     Active Substance: LACTULOSE
     Dosage: 1 DF, QD
     Route: 048
  56. PANTOPRAZOLE SODIUM [Suspect]
     Active Substance: PANTOPRAZOLE SODIUM
     Indication: Product used for unknown indication
     Dosage: 40 MG,QD,
     Route: 048
  57. PANTOPRAZOLE SODIUM [Suspect]
     Active Substance: PANTOPRAZOLE SODIUM
     Dosage: 40.0 MILLIGRAM(S) (40 MILLIGRAM(S)),1 IN 1 DAY
     Route: 048
  58. PANTOPRAZOLE SODIUM [Suspect]
     Active Substance: PANTOPRAZOLE SODIUM
     Route: 048
  59. BENSERAZIDE HYDROCHLORIDE [Suspect]
     Active Substance: BENSERAZIDE HYDROCHLORIDE
     Indication: Product used for unknown indication
     Dosage: (100 MILLIGRAM(S)) IN 12 HOUR
     Route: 048
  60. BENSERAZIDE HYDROCHLORIDE [Suspect]
     Active Substance: BENSERAZIDE HYDROCHLORIDE
     Dosage: 200.0 MILLIGRAM(S) (100 MILLIGRAM(S)),1 IN 12 HOUR
     Route: 048
  61. BENSERAZIDE HYDROCHLORIDE [Suspect]
     Active Substance: BENSERAZIDE HYDROCHLORIDE
     Dosage: (100 MILLIGRAM(S))
     Route: 048
  62. BENSERAZIDE HYDROCHLORIDE [Suspect]
     Active Substance: BENSERAZIDE HYDROCHLORIDE
     Dosage: 100 MILLIGRAM(S)) IN 12 HOUR
     Route: 048
  63. BENSERAZIDE HYDROCHLORIDE [Suspect]
     Active Substance: BENSERAZIDE HYDROCHLORIDE
     Dosage: (100 MILLIGRAM(S)) IN 12 HOUR
     Route: 048
  64. CHOLECALCIFEROL [Suspect]
     Active Substance: CHOLECALCIFEROL
     Indication: Product used for unknown indication
     Dosage: 100 UNK, QD
     Route: 048
  65. CHOLECALCIFEROL [Suspect]
     Active Substance: CHOLECALCIFEROL
     Dosage: 1 DF, QD
     Route: 048
  66. CHOLECALCIFEROL [Suspect]
     Active Substance: CHOLECALCIFEROL
     Dosage: 100 IU, QD
     Route: 048
  67. CHOLECALCIFEROL [Suspect]
     Active Substance: CHOLECALCIFEROL
     Dosage: 100 UNK
     Route: 048
  68. CHOLECALCIFEROL [Suspect]
     Active Substance: CHOLECALCIFEROL
     Dosage: 1 DF
     Route: 048
  69. CHOLECALCIFEROL [Suspect]
     Active Substance: CHOLECALCIFEROL
     Route: 048
  70. ACETAMINOPHEN\PENTAZOCINE HYDROCHLORIDE [Suspect]
     Active Substance: ACETAMINOPHEN\PENTAZOCINE HYDROCHLORIDE
     Indication: Product used for unknown indication
     Dosage: 1 DOSAGE FORM) IN 1 DAY
     Route: 048
  71. ACETAMINOPHEN\PENTAZOCINE HYDROCHLORIDE [Suspect]
     Active Substance: ACETAMINOPHEN\PENTAZOCINE HYDROCHLORIDE
     Dosage: (90 DOSAGE FORM) IN 1 DAY
     Route: 048
  72. ACETAMINOPHEN\PENTAZOCINE HYDROCHLORIDE [Suspect]
     Active Substance: ACETAMINOPHEN\PENTAZOCINE HYDROCHLORIDE
     Dosage: 30 DROP(S)) IN 8 HOUR
     Route: 048
  73. PENTAZOCINE HYDROCHLORIDE [Suspect]
     Active Substance: PENTAZOCINE HYDROCHLORIDE
     Indication: Product used for unknown indication
     Dosage: 1 UNK
     Route: 048
  74. PENTAZOCINE HYDROCHLORIDE [Suspect]
     Active Substance: PENTAZOCINE HYDROCHLORIDE
     Dosage: (1 DOSAGE FORM) IN 1 DAY
     Route: 048
  75. PENTAZOCINE HYDROCHLORIDE [Suspect]
     Active Substance: PENTAZOCINE HYDROCHLORIDE
     Dosage: 90.0 DOSAGE FORM (90 DOSAGE FORM),1 IN 1 DAY
     Route: 048
  76. PENTAZOCINE HYDROCHLORIDE [Suspect]
     Active Substance: PENTAZOCINE HYDROCHLORIDE
     Dosage: (30 DROP(S)) IN 8 HOUR
     Route: 048
  77. PENTAZOCINE HYDROCHLORIDE [Suspect]
     Active Substance: PENTAZOCINE HYDROCHLORIDE
     Dosage: 90 DOSAGE FORM) IN 1 DAY
     Route: 048
  78. PENTAZOCINE HYDROCHLORIDE [Suspect]
     Active Substance: PENTAZOCINE HYDROCHLORIDE
     Dosage: 90 DF, QD
     Route: 048
  79. PENTAZOCINE HYDROCHLORIDE [Suspect]
     Active Substance: PENTAZOCINE HYDROCHLORIDE
     Dosage: 30 GTT DROPS, TID
     Route: 048
  80. PENTAZOCINE HYDROCHLORIDE [Suspect]
     Active Substance: PENTAZOCINE HYDROCHLORIDE
     Dosage: 1.0 DOSAGE FORM (1 DOSAGE FORM),1 IN 1 DAY
     Route: 048
  81. PENTAZOCINE HYDROCHLORIDE [Suspect]
     Active Substance: PENTAZOCINE HYDROCHLORIDE
     Dosage: ,1 IN 8 HOUR
     Route: 048
  82. PENTAZOCINE HYDROCHLORIDE [Suspect]
     Active Substance: PENTAZOCINE HYDROCHLORIDE
     Dosage: 90 DF
     Route: 048
  83. PENTAZOCINE HYDROCHLORIDE [Suspect]
     Active Substance: PENTAZOCINE HYDROCHLORIDE
     Route: 048
  84. PENTAZOCINE HYDROCHLORIDE [Suspect]
     Active Substance: PENTAZOCINE HYDROCHLORIDE
     Dosage: 1 DOSAGE FORM
     Route: 048
  85. URSODIOL [Suspect]
     Active Substance: URSODIOL
     Indication: Product used for unknown indication
     Dosage: 500 MG,BID
     Route: 048
  86. URSODIOL [Suspect]
     Active Substance: URSODIOL
     Dosage: 500 MG, BID
     Route: 048
  87. URSODIOL [Suspect]
     Active Substance: URSODIOL
     Route: 048
  88. URSODIOL [Suspect]
     Active Substance: URSODIOL
     Route: 048
  89. FLUTICASONE PROPIONATE\SALMETEROL XINAFOATE [Suspect]
     Active Substance: FLUTICASONE PROPIONATE\SALMETEROL XINAFOATE
     Indication: Product used for unknown indication
     Dosage: 2.0 DOSAGE FORM (2 DOSAGE FORM),1 IN 1 DAY
     Route: 055
  90. FLUTICASONE PROPIONATE\SALMETEROL XINAFOATE [Suspect]
     Active Substance: FLUTICASONE PROPIONATE\SALMETEROL XINAFOATE
     Dosage: 1.0 DOSAGE FORM (1 DOSAGE FORM),1 IN 1 DAY
     Route: 055
  91. FLUTICASONE PROPIONATE\SALMETEROL XINAFOATE [Suspect]
     Active Substance: FLUTICASONE PROPIONATE\SALMETEROL XINAFOATE
     Indication: Product used for unknown indication
     Dosage: 2 DOSAGE FORM) IN 1 DAY
     Route: 055
  92. FLUTICASONE PROPIONATE\SALMETEROL XINAFOATE [Suspect]
     Active Substance: FLUTICASONE PROPIONATE\SALMETEROL XINAFOATE
     Dosage: 1 DOSAGE FORM) IN 1 DAY
     Route: 055
  93. FLUTICASONE PROPIONATE\SALMETEROL XINAFOATE [Suspect]
     Active Substance: FLUTICASONE PROPIONATE\SALMETEROL XINAFOATE
     Dosage: 2 DF
     Route: 055
  94. FLUTICASONE PROPIONATE\SALMETEROL XINAFOATE [Suspect]
     Active Substance: FLUTICASONE PROPIONATE\SALMETEROL XINAFOATE
     Dosage: 1 DF
     Route: 055
  95. FLUTICASONE PROPIONATE\SALMETEROL XINAFOATE [Suspect]
     Active Substance: FLUTICASONE PROPIONATE\SALMETEROL XINAFOATE
     Dosage: 2 UNK, UNK
     Route: 055
  96. MAGNESIUM [Suspect]
     Active Substance: MAGNESIUM
     Indication: Product used for unknown indication
     Dosage: (2 DOSAGE FORM) IN 1 DAY
     Route: 048
  97. MAGNESIUM [Suspect]
     Active Substance: MAGNESIUM
     Dosage: IN 12 HOUR
     Route: 048
  98. MAGNESIUM [Suspect]
     Active Substance: MAGNESIUM
     Dosage: (2 DOSAGE FORM) IN 1 DAY
     Route: 048
  99. MAGNESIUM [Suspect]
     Active Substance: MAGNESIUM
     Dosage: (1 DOSAGE FORM) IN 1 DAY
     Route: 048
  100. MAGNESIUM [Suspect]
     Active Substance: MAGNESIUM
     Dosage: (2 DOSAGE FORM) IN 1 DAY
     Route: 048
  101. MAGNESIUM [Suspect]
     Active Substance: MAGNESIUM
     Dosage: (2 DOSAGE FORM) IN 1 DAY
     Route: 048
  102. MAGNESIUM [Suspect]
     Active Substance: MAGNESIUM
     Dosage: (2 DOSAGE FORM) IN 1 DAY
     Route: 048
  103. MAGNESIUM [Suspect]
     Active Substance: MAGNESIUM
     Dosage: (2 DOSAGE FORM) IN 1 DAY
     Route: 048
  104. MAGNESIUM [Suspect]
     Active Substance: MAGNESIUM
     Dosage: 2.0 DOSAGE FORM (2 DOSAGE FORM),1 IN 1 DAY
     Route: 048
  105. MAGNESIUM [Suspect]
     Active Substance: MAGNESIUM
     Dosage: (2 DOSAGE FORM) IN 1 DAY
     Route: 048
  106. MAGNESIUM [Suspect]
     Active Substance: MAGNESIUM
     Dosage: 1.0 DOSAGE FORM (1 DOSAGE FORM),1 IN 1 DAY
     Route: 048
  107. MAGNESIUM [Suspect]
     Active Substance: MAGNESIUM
     Dosage: ,1 IN 12 HOUR
     Route: 048
  108. BENSERAZIDE\LEVODOPA [Suspect]
     Active Substance: BENSERAZIDE\LEVODOPA
     Indication: Product used for unknown indication
     Dosage: 1 DOSAGE FORM) IN 1 DAY
     Route: 055
  109. BENSERAZIDE\LEVODOPA [Suspect]
     Active Substance: BENSERAZIDE\LEVODOPA
     Dosage: 100 MG, QD
     Route: 048
  110. BENSERAZIDE\LEVODOPA [Suspect]
     Active Substance: BENSERAZIDE\LEVODOPA
     Dosage: 100 MG, BID
     Route: 048
  111. BENSERAZIDE\LEVODOPA [Suspect]
     Active Substance: BENSERAZIDE\LEVODOPA
     Dosage: 100.0 MILLIGRAM(S) (100 MILLIGRAM(S)),1 IN 1 DAY
     Route: 048
  112. BENSERAZIDE\LEVODOPA [Suspect]
     Active Substance: BENSERAZIDE\LEVODOPA
     Dosage: (100 MILLIGRAM(S)) IN 1 DAY
     Route: 048
  113. BENSERAZIDE\LEVODOPA [Suspect]
     Active Substance: BENSERAZIDE\LEVODOPA
     Dosage: 1 DF, QD
     Route: 055
  114. BENSERAZIDE\LEVODOPA [Suspect]
     Active Substance: BENSERAZIDE\LEVODOPA
     Dosage: 200.0 MILLIGRAM(S) (100 MILLIGRAM(S)),1 IN 12 HOUR
     Route: 048
  115. BENSERAZIDE\LEVODOPA [Suspect]
     Active Substance: BENSERAZIDE\LEVODOPA
     Dosage: 1.0 DOSAGE FORM (1 DOSAGE FORM),1 IN 1 DAY
     Route: 055
  116. BENSERAZIDE\LEVODOPA [Suspect]
     Active Substance: BENSERAZIDE\LEVODOPA
     Dosage: 1 DF
     Route: 055
  117. BENSERAZIDE\LEVODOPA [Suspect]
     Active Substance: BENSERAZIDE\LEVODOPA
     Route: 048
  118. BENSERAZIDE\LEVODOPA [Suspect]
     Active Substance: BENSERAZIDE\LEVODOPA
     Route: 048
  119. AZATHIOPRINE [Suspect]
     Active Substance: AZATHIOPRINE
     Indication: Product used for unknown indication
     Dosage: (50 MILLIGRAM(S)) IN 1 DAY
     Route: 048
  120. AZATHIOPRINE [Suspect]
     Active Substance: AZATHIOPRINE
     Dosage: 50.0 MILLIGRAM(S) (50 MILLIGRAM(S)),1 IN 1 DAY
     Route: 048
  121. AZATHIOPRINE [Suspect]
     Active Substance: AZATHIOPRINE
     Dosage: (50 MILLIGRAM(S))
     Route: 048
  122. AZATHIOPRINE [Suspect]
     Active Substance: AZATHIOPRINE
     Dosage: 50 MG, QD
     Route: 048
  123. AZATHIOPRINE [Suspect]
     Active Substance: AZATHIOPRINE
     Dosage: (50 MILLIGRAM(S)) IN 1 DAY
     Route: 048
  124. AZATHIOPRINE [Suspect]
     Active Substance: AZATHIOPRINE
     Dosage: 50 MILLIGRAM(S)) IN 1 DAY
     Route: 048
  125. AZATHIOPRINE [Suspect]
     Active Substance: AZATHIOPRINE
     Route: 048
  126. MAGNESIUM [Suspect]
     Active Substance: MAGNESIUM
     Indication: Product used for unknown indication
     Dosage: 4.0 DOSAGE FORM (2 DOSAGE FORM),1 IN 12 HOUR
     Route: 048
  127. ACETAMINOPHEN\PENTAZOCINE HYDROCHLORIDE [Suspect]
     Active Substance: ACETAMINOPHEN\PENTAZOCINE HYDROCHLORIDE
     Indication: Product used for unknown indication
     Dosage: 90.0 DOSAGE FORM (90 DOSAGE FORM),1 IN 1 DAY
     Route: 048
  128. ACETAMINOPHEN\PENTAZOCINE HYDROCHLORIDE [Suspect]
     Active Substance: ACETAMINOPHEN\PENTAZOCINE HYDROCHLORIDE
     Dosage: (30 DROP(S)) IN 8 HOUR
     Route: 048
  129. ACETAMINOPHEN\PENTAZOCINE HYDROCHLORIDE [Suspect]
     Active Substance: ACETAMINOPHEN\PENTAZOCINE HYDROCHLORIDE
     Dosage: (1 DOSAGE FORM) IN 1 DAY
     Route: 048
  130. ACETAMINOPHEN\PENTAZOCINE HYDROCHLORIDE [Suspect]
     Active Substance: ACETAMINOPHEN\PENTAZOCINE HYDROCHLORIDE
     Dosage: (90 DOSAGE FORM) IN 1 DAY
     Route: 048
  131. ACETAMINOPHEN\PENTAZOCINE HYDROCHLORIDE [Suspect]
     Active Substance: ACETAMINOPHEN\PENTAZOCINE HYDROCHLORIDE
     Dosage: 1.0 DOSAGE FORM (1 DOSAGE FORM),1 IN 1 DAY
     Route: 048
  132. ACETAMINOPHEN\PENTAZOCINE HYDROCHLORIDE [Suspect]
     Active Substance: ACETAMINOPHEN\PENTAZOCINE HYDROCHLORIDE
     Dosage: ,1 IN 8 HOUR
     Route: 048
  133. ACETAMINOPHEN\PENTAZOCINE HYDROCHLORIDE [Suspect]
     Active Substance: ACETAMINOPHEN\PENTAZOCINE HYDROCHLORIDE
     Dosage: 90 DF
     Route: 048
  134. ACETAMINOPHEN\PENTAZOCINE HYDROCHLORIDE [Suspect]
     Active Substance: ACETAMINOPHEN\PENTAZOCINE HYDROCHLORIDE
     Dosage: 1 DF
     Route: 048
  135. ACETAMINOPHEN\PENTAZOCINE HYDROCHLORIDE [Suspect]
     Active Substance: ACETAMINOPHEN\PENTAZOCINE HYDROCHLORIDE
     Route: 048
  136. MAGNESIUM [Suspect]
     Active Substance: MAGNESIUM
     Indication: Product used for unknown indication
     Dosage: 2 DF, QD
     Route: 048
  137. MAGNESIUM [Suspect]
     Active Substance: MAGNESIUM
     Dosage: 2 DF, QD
     Route: 048
  138. MAGNESIUM [Suspect]
     Active Substance: MAGNESIUM
     Dosage: 1 DF, QD
     Route: 048
  139. MAGNESIUM [Suspect]
     Active Substance: MAGNESIUM
     Dosage: 2 DF, QD
     Route: 048
  140. MAGNESIUM [Suspect]
     Active Substance: MAGNESIUM
     Dosage: UNK UNK, BID
     Route: 048
  141. MAGNESIUM [Suspect]
     Active Substance: MAGNESIUM
     Dosage: 2 DF, QD
     Route: 048
  142. MAGNESIUM [Suspect]
     Active Substance: MAGNESIUM
     Dosage: 2 DF
     Route: 048
  143. MAGNESIUM [Suspect]
     Active Substance: MAGNESIUM
     Route: 048
  144. MAGNESIUM [Suspect]
     Active Substance: MAGNESIUM
     Dosage: 1 DF
     Route: 048
  145. MAGNESIUM [Suspect]
     Active Substance: MAGNESIUM
     Dosage: 2 DF
     Route: 048
  146. MAGNESIUM [Suspect]
     Active Substance: MAGNESIUM
     Dosage: 2 DF
     Route: 048
  147. MAGNESIUM [Suspect]
     Active Substance: MAGNESIUM
     Dosage: 2 DF
     Route: 048
  148. SPIRONOLACTONE [Suspect]
     Active Substance: SPIRONOLACTONE
     Indication: Product used for unknown indication
     Dosage: 400.0 MILLIGRAM(S) (200 MILLIGRAM(S)),1 IN 12 HOUR
     Route: 048
  149. SPIRONOLACTONE [Suspect]
     Active Substance: SPIRONOLACTONE
     Dosage: 200 MG, BID
     Route: 048
  150. SPIRONOLACTONE [Suspect]
     Active Substance: SPIRONOLACTONE
     Dosage: 100 MG, BID
     Route: 048
  151. SPIRONOLACTONE [Suspect]
     Active Substance: SPIRONOLACTONE
     Dosage: 200 MILLIGRAM(S)) IN 12 HOUR
     Route: 048
  152. SPIRONOLACTONE [Suspect]
     Active Substance: SPIRONOLACTONE
     Dosage: (100 MILLIGRAM(S)) IN 1 DAY
     Route: 048
  153. SPIRONOLACTONE [Suspect]
     Active Substance: SPIRONOLACTONE
     Dosage: (100 MILLIGRAM(S)) IN 1 DAY
     Route: 048
  154. SPIRONOLACTONE [Suspect]
     Active Substance: SPIRONOLACTONE
     Dosage: (100 MILLIGRAM(S)) IN 1 DAY
     Route: 048
  155. SPIRONOLACTONE [Suspect]
     Active Substance: SPIRONOLACTONE
     Dosage: 100.0 MILLIGRAM(S) (100 MILLIGRAM(S)),1 IN 1 DAY
     Route: 048
  156. SPIRONOLACTONE [Suspect]
     Active Substance: SPIRONOLACTONE
     Dosage: 2.0 DOSAGE FORM (2 DOSAGE FORM),1 IN 1 DAY
     Route: 048
  157. SPIRONOLACTONE [Suspect]
     Active Substance: SPIRONOLACTONE
     Dosage: (200 MILLIGRAM(S)) IN 12 HOUR
     Route: 048
  158. SPIRONOLACTONE [Suspect]
     Active Substance: SPIRONOLACTONE
     Dosage: 100 MG, QD
     Route: 048
  159. SPIRONOLACTONE [Suspect]
     Active Substance: SPIRONOLACTONE
     Dosage: (200 MILLIGRAM(S)) IN 12 HOUR
     Route: 048
  160. SPIRONOLACTONE [Suspect]
     Active Substance: SPIRONOLACTONE
     Dosage: (100 MILLIGRAM(S)) IN 1 DAY
     Route: 048
  161. SPIRONOLACTONE [Suspect]
     Active Substance: SPIRONOLACTONE
     Dosage: (200 MILLIGRAM(S)) IN 12 HOUR
     Route: 048
  162. SPIRONOLACTONE [Suspect]
     Active Substance: SPIRONOLACTONE
     Dosage: 200 MILLIGRAM(S)) IN 1 DAY
     Route: 048
  163. SPIRONOLACTONE [Suspect]
     Active Substance: SPIRONOLACTONE
     Dosage: 200 MG, BID
     Route: 048
  164. SPIRONOLACTONE [Suspect]
     Active Substance: SPIRONOLACTONE
     Dosage: 2 DF, QD
     Route: 048
  165. SPIRONOLACTONE [Suspect]
     Active Substance: SPIRONOLACTONE
     Dosage: (200 MILLIGRAM(S)) IN 12 HOUR
     Route: 048
  166. SPIRONOLACTONE [Suspect]
     Active Substance: SPIRONOLACTONE
     Dosage: (200 MILLIGRAM(S)) IN 12 HOUR
     Route: 048
  167. SPIRONOLACTONE [Suspect]
     Active Substance: SPIRONOLACTONE
     Dosage: 200.0 MILLIGRAM(S) (100 MILLIGRAM(S)),1 IN 12 HOUR
     Route: 048
  168. SPIRONOLACTONE [Suspect]
     Active Substance: SPIRONOLACTONE
     Dosage: (100 MILLIGRAM(S)) IN 12 HOUR
     Route: 048
  169. SPIRONOLACTONE [Suspect]
     Active Substance: SPIRONOLACTONE
     Dosage: 2 DF
     Route: 048
  170. SPIRONOLACTONE [Suspect]
     Active Substance: SPIRONOLACTONE
     Route: 048
  171. SPIRONOLACTONE [Suspect]
     Active Substance: SPIRONOLACTONE
     Route: 048
  172. SPIRONOLACTONE [Suspect]
     Active Substance: SPIRONOLACTONE
     Route: 048
  173. SPIRONOLACTONE [Suspect]
     Active Substance: SPIRONOLACTONE
     Route: 048
  174. METAMIZOLE SODIUM [Suspect]
     Active Substance: METAMIZOLE SODIUM
     Indication: Product used for unknown indication
     Dosage: 90.0 DROP(S) (30 DROP(S)),1 IN 8 HOUR
     Route: 048
  175. METAMIZOLE SODIUM [Suspect]
     Active Substance: METAMIZOLE SODIUM
     Indication: Product used for unknown indication
     Dosage: 30 GTT DROPS, TID
     Route: 048
  176. METAMIZOLE SODIUM [Suspect]
     Active Substance: METAMIZOLE SODIUM
     Route: 048
  177. FUROSEMIDE [Suspect]
     Active Substance: FUROSEMIDE
     Indication: Product used for unknown indication
     Route: 048
  178. FUROSEMIDE [Suspect]
     Active Substance: FUROSEMIDE
     Route: 048
  179. FUROSEMIDE [Suspect]
     Active Substance: FUROSEMIDE
     Route: 048
  180. FUROSEMIDE [Suspect]
     Active Substance: FUROSEMIDE
     Route: 048
  181. FENTANYL [Suspect]
     Active Substance: FENTANYL
     Indication: Product used for unknown indication
  182. SIMVASTATIN [Concomitant]
     Active Substance: SIMVASTATIN
     Indication: Product used for unknown indication
     Dosage: 40 MG, QD (0-0-1-0); 40.0 MILLIGRAM(S) (40 MILLIGRAM(S)),1 IN 1 DAY
     Route: 048
  183. SIMVASTATIN [Concomitant]
     Active Substance: SIMVASTATIN
     Route: 048
  184. FUROSEMIDE [Concomitant]
     Active Substance: FUROSEMIDE
     Indication: Product used for unknown indication
     Dosage: 40 MG, Q6H
     Route: 048
  185. FUROSEMIDE [Concomitant]
     Active Substance: FUROSEMIDE
     Dosage: 40 MG, QD
     Route: 048
  186. FUROSEMIDE [Concomitant]
     Active Substance: FUROSEMIDE
     Dosage: 160 MG, QD
     Route: 048
  187. FUROSEMIDE [Concomitant]
     Active Substance: FUROSEMIDE
     Dosage: 40 MG, QID
     Route: 048
  188. FUROSEMIDE [Concomitant]
     Active Substance: FUROSEMIDE
     Route: 048
  189. FUROSEMIDE [Concomitant]
     Active Substance: FUROSEMIDE
     Route: 048
  190. FUROSEMIDE [Concomitant]
     Active Substance: FUROSEMIDE
     Route: 048
  191. FUROSEMIDE [Concomitant]
     Active Substance: FUROSEMIDE
     Route: 048
  192. BENSERAZIDE HYDROCHLORIDE [Concomitant]
     Active Substance: BENSERAZIDE HYDROCHLORIDE
     Indication: Product used for unknown indication
     Dosage: 100 MG, BID
     Route: 048
  193. BENSERAZIDE HYDROCHLORIDE [Concomitant]
     Active Substance: BENSERAZIDE HYDROCHLORIDE
     Route: 048
  194. LACTULOSE [Concomitant]
     Active Substance: LACTULOSE
     Indication: Product used for unknown indication
     Dosage: 1 DF, QD
     Route: 048
  195. LACTULOSE [Concomitant]
     Active Substance: LACTULOSE
     Dosage: 1 DF, QD
     Route: 048
  196. LACTULOSE [Concomitant]
     Active Substance: LACTULOSE
     Dosage: 1 UNK, UNK
     Route: 048
  197. LACTULOSE [Concomitant]
     Active Substance: LACTULOSE
     Dosage: 1 DF
     Route: 048
  198. LACTULOSE [Concomitant]
     Active Substance: LACTULOSE
     Dosage: 1 DF
     Route: 048
  199. LACTULOSE [Concomitant]
     Active Substance: LACTULOSE
     Dosage: 1 UNK, UNK
     Route: 048

REACTIONS (3)
  - General physical health deterioration [Unknown]
  - Product prescribing error [Unknown]
  - Drug interaction [Unknown]

NARRATIVE: CASE EVENT DATE: 20150916
